FAERS Safety Report 21658104 (Version 1)
Quarter: 2022Q4

REPORT INFORMATION
  Report Type: Spontaneous
  Country: FR (occurrence: FR)
  Receive Date: 20221129
  Receipt Date: 20221129
  Transmission Date: 20230112
  Serious: Yes (Hospitalization)
  Sender: FDA-Public Use
  Company Number: None

PATIENT
  Age: 49 Year
  Sex: Male
  Weight: 173.9 kg

DRUGS (5)
  1. LINEZOLID [Suspect]
     Active Substance: LINEZOLID
     Indication: Chronic obstructive pulmonary disease
     Dosage: 600 MG, 2X/DAY
     Route: 042
     Dates: start: 20221102, end: 20221106
  2. FLUCONAZOLE [Suspect]
     Active Substance: FLUCONAZOLE
     Indication: Chronic obstructive pulmonary disease
     Dosage: 800 MG, 1X/DAY
     Route: 042
     Dates: start: 20221102, end: 20221106
  3. PIPERACILLIN SODIUM\TAZOBACTAM SODIUM [Suspect]
     Active Substance: PIPERACILLIN SODIUM\TAZOBACTAM SODIUM
     Indication: Chronic obstructive pulmonary disease
     Dosage: 4 G, 4X/DAY
     Route: 042
     Dates: start: 20221102, end: 20221106
  4. METRONIDAZOLE [Suspect]
     Active Substance: METRONIDAZOLE
     Indication: Chronic obstructive pulmonary disease
     Dosage: 500MG X 3/DAY
     Route: 042
     Dates: start: 20221102, end: 20221106
  5. AUGMENTIN [Suspect]
     Active Substance: AMOXICILLIN\CLAVULANATE POTASSIUM
     Indication: Chronic obstructive pulmonary disease
     Dosage: 2G  X3/ DAY
     Route: 042
     Dates: start: 20221106, end: 20221108

REACTIONS (2)
  - Rash erythematous [Recovering/Resolving]
  - Off label use [Unknown]

NARRATIVE: CASE EVENT DATE: 20221102
